FAERS Safety Report 24931328 (Version 1)
Quarter: 2025Q1

REPORT INFORMATION
  Report Type: Report from Study
  Country: US (occurrence: US)
  Receive Date: 20250205
  Receipt Date: 20250205
  Transmission Date: 20250409
  Serious: Yes (Other)
  Sender: AURINIA PHARMACEUTICALS
  Company Number: US-OTSUKA PHARMACEUTICAL NETHERLANDS B.V.-AUR-006587

PATIENT
  Age: 51 Year
  Sex: Female

DRUGS (3)
  1. LUPKYNIS [Suspect]
     Active Substance: VOCLOSPORIN
     Indication: Lupus nephritis
     Dosage: 7.9 MILLIGRAM, QD
     Route: 048
     Dates: start: 20221017
  2. LUPKYNIS [Suspect]
     Active Substance: VOCLOSPORIN
     Route: 048
     Dates: start: 20221022, end: 20240329
  3. LUPKYNIS [Suspect]
     Active Substance: VOCLOSPORIN
     Dates: start: 20240411, end: 20240708

REACTIONS (2)
  - Renal impairment [Unknown]
  - Diarrhoea [Unknown]

NARRATIVE: CASE EVENT DATE: 20240329
